FAERS Safety Report 14099051 (Version 1)
Quarter: 2017Q4

REPORT INFORMATION
  Report Type: Spontaneous
  Country: US (occurrence: US)
  Receive Date: 20171017
  Receipt Date: 20171017
  Transmission Date: 20180321
  Serious: Yes (Other)
  Sender: FDA-Public Use
  Company Number: US-BTG INTERNATIONAL LTD-2017BTG01365

PATIENT
  Age: 32 Year
  Sex: Female

DRUGS (6)
  1. CROFAB [Suspect]
     Active Substance: CROTALIDAE POLYVALENT IMMUNE FAB (OVINE)
     Dosage: 6 VIALS, SINGLE
     Dates: start: 20170903
  2. CROFAB [Suspect]
     Active Substance: CROTALIDAE POLYVALENT IMMUNE FAB (OVINE)
     Dosage: 6 VIALS, SINGLE
     Dates: start: 20170903
  3. CROFAB [Suspect]
     Active Substance: CROTALIDAE POLYVALENT IMMUNE FAB (OVINE)
     Dosage: 6 VIALS, SINGLE
     Dates: start: 20170903
  4. CROFAB [Suspect]
     Active Substance: CROTALIDAE POLYVALENT IMMUNE FAB (OVINE)
     Indication: SNAKE BITE
     Dosage: 6 VIALS, SINGLE
     Dates: start: 20170903
  5. CROFAB [Suspect]
     Active Substance: CROTALIDAE POLYVALENT IMMUNE FAB (OVINE)
     Dosage: 2 VIALS, SINGLE
     Dates: start: 201709
  6. CROFAB [Suspect]
     Active Substance: CROTALIDAE POLYVALENT IMMUNE FAB (OVINE)
     Dosage: 2 VIALS, SINGLE
     Dates: start: 201709

REACTIONS (6)
  - Chest discomfort [Recovering/Resolving]
  - Skin discolouration [Unknown]
  - Pain in extremity [Unknown]
  - Swelling [Unknown]
  - Walking disability [Unknown]
  - Epistaxis [Unknown]

NARRATIVE: CASE EVENT DATE: 201709
